FAERS Safety Report 11258059 (Version 3)
Quarter: 2017Q2

REPORT INFORMATION
  Report Type: Spontaneous
  Country: US (occurrence: US)
  Receive Date: 20150708
  Receipt Date: 20170601
  Transmission Date: 20170829
  Serious: Yes (Hospitalization, Other)
  Sender: FDA-Public Use
  Company Number: US-SEPTODONT-201502897

PATIENT
  Age: 86 Year
  Sex: Female
  Weight: 68 kg

DRUGS (16)
  1. LEVOTHYROXINE. [Concomitant]
     Active Substance: LEVOTHYROXINE
     Route: 048
  2. ATENOLOL. [Concomitant]
     Active Substance: ATENOLOL
     Route: 048
  3. OMEPRAZOLE 20MG [Concomitant]
     Active Substance: OMEPRAZOLE
     Route: 048
  4. TRIPLEFLEX [Concomitant]
     Route: 048
  5. NUTRITION NOW PB 8 [Concomitant]
     Route: 048
  6. SEPTOCAINE AND EPINEPHRINE [Suspect]
     Active Substance: ARTICAINE HYDROCHLORIDE\EPINEPHRINE BITARTRATE
     Indication: LOCAL ANAESTHESIA
     Dosage: 1 CC BUCCAL + 0.2 CC PALATAL
     Route: 004
     Dates: start: 20150318, end: 20150318
  7. FISH OIL  RICH IN OMEGA-3-ACIDS [Concomitant]
     Dosage: 2 EACH DAY
     Route: 048
  8. MULTIVITAMIN NOS [Concomitant]
     Active Substance: VITAMINS
     Route: 048
  9. ENALAPRIL [Concomitant]
     Active Substance: ENALAPRIL
     Route: 048
  10. CALCIUM MAGNESIUM WITH VITAMIN D [Concomitant]
     Route: 048
  11. CHROMIUM PICOLINATE [Concomitant]
     Active Substance: CHROMIUM PICOLINATE
     Route: 048
  12. POTASSIUM [Concomitant]
     Active Substance: POTASSIUM
     Route: 048
  13. VALIUM [Concomitant]
     Active Substance: DIAZEPAM
     Dosage: 5 MG (VERY SELDOM)
     Route: 048
  14. PRAMIPEXOLE. [Concomitant]
     Active Substance: PRAMIPEXOLE
     Dosage: 0.25 MG 1/2 EACH DAY (FOR RESTLESS LEG SYNDROME)
     Route: 048
  15. VITAMIN D [Concomitant]
     Active Substance: CHOLECALCIFEROL
     Route: 048
  16. SACCHAROMYCES BOULARDII LYOPHILISED [Concomitant]
     Dosage: 3 EACH WEEK
     Route: 048

REACTIONS (8)
  - Blood pressure increased [Unknown]
  - Dystonia [Recovering/Resolving]
  - Myoclonus [Recovering/Resolving]
  - Feeling abnormal [Unknown]
  - Hyponatraemia [Unknown]
  - Tonic clonic movements [Recovering/Resolving]
  - Muscular weakness [Unknown]
  - Dizziness [Recovered/Resolved]

NARRATIVE: CASE EVENT DATE: 20150318
